FAERS Safety Report 18270518 (Version 1)
Quarter: 2020Q3

REPORT INFORMATION
  Report Type: Spontaneous
  Country: GR (occurrence: GR)
  Receive Date: 20200915
  Receipt Date: 20200915
  Transmission Date: 20201103
  Serious: Yes (Other)
  Sender: FDA-Public Use
  Company Number: GR-PFIZER INC-2020351165

PATIENT
  Age: 49 Year

DRUGS (1)
  1. TAZOCIN [Suspect]
     Active Substance: PIPERACILLIN SODIUM\TAZOBACTAM SODIUM
     Indication: TUBERCULOSIS
     Dosage: UNK
     Route: 042

REACTIONS (3)
  - Renal impairment [Unknown]
  - Normochromic normocytic anaemia [Unknown]
  - Inflammatory marker increased [Unknown]
